FAERS Safety Report 13017780 (Version 6)
Quarter: 2017Q2

REPORT INFORMATION
  Report Type: Spontaneous
  Country: US (occurrence: US)
  Receive Date: 20161212
  Receipt Date: 20170425
  Transmission Date: 20170830
  Serious: Yes (Other)
  Sender: FDA-Public Use
  Company Number: US-PFIZER INC-2016574957

PATIENT
  Age: 57 Year
  Sex: Female

DRUGS (9)
  1. LYRICA [Suspect]
     Active Substance: PREGABALIN
     Indication: MYALGIA
     Dosage: 75 MG, 2X/DAY
     Route: 048
     Dates: start: 20160106, end: 201603
  2. TRAMADOL. [Concomitant]
     Active Substance: TRAMADOL
     Indication: PAIN
     Dosage: 100 MG, 3X/DAY
  3. NEURONTIN [Concomitant]
     Active Substance: GABAPENTIN
     Indication: PAIN
     Dosage: 600 MG, 2X/DAY
  4. ZEBUTAL [Concomitant]
     Active Substance: ACETAMINOPHEN\BUTALBITAL\CAFFEINE
     Indication: HEADACHE
     Dosage: 1 DF, EVERY 4 HRS
  5. CYMBALTA [Concomitant]
     Active Substance: DULOXETINE HYDROCHLORIDE
     Indication: PAIN
     Dosage: 60 MG, 2X/DAY
     Dates: start: 2014
  6. CELEBREX [Concomitant]
     Active Substance: CELECOXIB
     Indication: PAIN
     Dosage: 200 MG, 1X/DAY
  7. ZANAFLEX [Concomitant]
     Active Substance: TIZANIDINE HYDROCHLORIDE
     Indication: PAIN
     Dosage: 2 MG, 3X/DAY
  8. PHENERGAN [Concomitant]
     Active Substance: PROMETHAZINE HYDROCHLORIDE
     Indication: GASTRECTOMY
     Dosage: 100 MG, 4X/DAY
     Dates: start: 2014
  9. LYRICA [Suspect]
     Active Substance: PREGABALIN
     Indication: MIXED CONNECTIVE TISSUE DISEASE

REACTIONS (8)
  - Feeling abnormal [Recovering/Resolving]
  - Drug hypersensitivity [Unknown]
  - Loss of employment [Recovering/Resolving]
  - Paranoia [Recovered/Resolved]
  - Anxiety [Recovered/Resolved]
  - Depression [Recovering/Resolving]
  - Impaired quality of life [Recovering/Resolving]
  - Personality change [Recovering/Resolving]

NARRATIVE: CASE EVENT DATE: 201602
